FAERS Safety Report 5830562-9 (Version None)
Quarter: 2008Q3

REPORT INFORMATION
  Report Type: 
  Country: None (occurrence: None)
  Receive Date: 20080801
  Receipt Date: 20070717
  Transmission Date: 20090109
  Serious: Yes (Other)
  Sender: FDA-Public Use
  Company Number: US-BRISTOL-MYERS SQUIBB COMPANY-13848205

PATIENT
  Age: 84 Year
  Sex: Female
  Weight: 77 kg

DRUGS (9)
  1. COUMADIN [Suspect]
     Indication: HEART VALVE REPLACEMENT
  2. COUMADIN [Suspect]
     Indication: ATRIAL FIBRILLATION
  3. LASIX [Concomitant]
  4. FOSAMAX [Concomitant]
  5. ZOCOR [Concomitant]
  6. VITAMIN B-12 [Concomitant]
  7. FOLIC ACID [Concomitant]
  8. METOPROLOL [Concomitant]
  9. CALCIUM [Concomitant]
     Dates: start: 20070601

REACTIONS (1)
  - INTERNATIONAL NORMALISED RATIO INCREASED [None]
